FAERS Safety Report 19966362 (Version 1)
Quarter: 2021Q4

REPORT INFORMATION
  Report Type: Report from Study
  Country: US (occurrence: US)
  Receive Date: 20211018
  Receipt Date: 20211018
  Transmission Date: 20220303
  Serious: Yes (Other)
  Sender: FDA-Public Use
  Company Number: US-SEATTLE GENETICS-2020SGN04224

PATIENT
  Age: 65 Year
  Sex: Female

DRUGS (3)
  1. TUCATINIB [Suspect]
     Active Substance: TUCATINIB
     Indication: Product used for unknown indication
     Dosage: 50 MG, UNK
     Route: 048
  2. TUCATINIB [Suspect]
     Active Substance: TUCATINIB
     Dosage: 150 MG, UNK
     Dates: end: 2021
  3. HERCEPTIN [Concomitant]
     Active Substance: TRASTUZUMAB
     Indication: Product used for unknown indication
     Dosage: UNK
     Dates: start: 202009

REACTIONS (14)
  - Neuropathy peripheral [Unknown]
  - Skin discolouration [Unknown]
  - Pain of skin [Unknown]
  - Nail discomfort [Unknown]
  - Illness [Unknown]
  - Unevaluable event [Unknown]
  - Skin haemorrhage [Unknown]
  - Treatment noncompliance [Unknown]
  - Intentional underdose [Unknown]
  - Hypoaesthesia [Unknown]
  - Radiotherapy [Unknown]
  - Product dose omission issue [Unknown]
  - Fatigue [Unknown]
  - Decreased appetite [Unknown]

NARRATIVE: CASE EVENT DATE: 20200901
